FAERS Safety Report 12095300 (Version 1)
Quarter: 2016Q1

REPORT INFORMATION
  Report Type: Spontaneous
  Country: US (occurrence: US)
  Receive Date: 20160219
  Receipt Date: 20160219
  Transmission Date: 20160526
  Serious: No
  Sender: FDA-Public Use
  Company Number: GXBR2015US002354

PATIENT
  Sex: Male

DRUGS (1)
  1. VITAMIN A AND D [Suspect]
     Active Substance: LANOLIN\PETROLATUM
     Indication: RASH
     Dosage: UNK DF, UNK
     Route: 061

REACTIONS (3)
  - Drug ineffective [Unknown]
  - Wound haemorrhage [Unknown]
  - Rash [Not Recovered/Not Resolved]
